FAERS Safety Report 18920759 (Version 2)
Quarter: 2021Q2

REPORT INFORMATION
  Report Type: Spontaneous
  Country: US (occurrence: US)
  Receive Date: 20210222
  Receipt Date: 20210611
  Transmission Date: 20210717
  Serious: Yes (Other)
  Sender: FDA-Public Use
  Company Number: US-CIPLA LTD.-2021US01032

PATIENT

DRUGS (12)
  1. SALBUTAMOL [Suspect]
     Active Substance: ALBUTEROL
     Dosage: UNK
     Route: 065
     Dates: start: 202102
  2. VITAMIN D [VITAMIN D NOS] [Concomitant]
     Active Substance: VITAMIN D NOS
     Indication: PRODUCT USED FOR UNKNOWN INDICATION
     Dosage: UNK, QD, ONCE A DAY, SINCE 10 YEARS
     Route: 065
  3. SALBUTAMOL [Suspect]
     Active Substance: ALBUTEROL
     Indication: ASTHMA
     Dosage: UNK, BID, TWO TIMES A DAY, SINCE CHILDHOOD
     Route: 065
  4. LISINOPRIL. [Concomitant]
     Active Substance: LISINOPRIL
     Indication: HYPERTENSION
     Dosage: 40 MILLIGRAM, QD, SINCE 5 YEARS
     Route: 065
  5. DOLIPRANE [Concomitant]
     Active Substance: ACETAMINOPHEN
     Indication: SLEEP DISORDER
     Dosage: UNK, QD, ONCE AT NIGHT
     Route: 065
     Dates: start: 202101
  6. VITAMIN C [Concomitant]
     Active Substance: ASCORBIC ACID
     Indication: PRODUCT USED FOR UNKNOWN INDICATION
     Dosage: UNK, QD, ONCE A DAY, SINCE 10 YEARS
     Route: 065
  7. DIVALPROEX [Concomitant]
     Active Substance: DIVALPROEX SODIUM
     Indication: SEIZURE
     Dosage: 1000 MILLIGRAM, BID, 5 WEEKS AGO
     Route: 065
     Dates: start: 2021
  8. DIVALPROEX [Concomitant]
     Active Substance: DIVALPROEX SODIUM
     Dosage: 750 MILLIGRAM, UNK
     Route: 065
     Dates: start: 20210101
  9. ZIPRASIDONE. [Concomitant]
     Active Substance: ZIPRASIDONE
     Indication: BIPOLAR DISORDER
     Dosage: 80 MILLIGRAM, QD
     Route: 065
     Dates: start: 20210115
  10. SALBUTAMOL [Suspect]
     Active Substance: ALBUTEROL
     Dosage: UNK
     Route: 065
     Dates: start: 202105, end: 20210528
  11. TRAZODONE [Concomitant]
     Active Substance: TRAZODONE HYDROCHLORIDE
     Indication: SLEEP DISORDER
     Dosage: 2000 MILLIGRAM, QD, ONCE AT NIGHT
     Route: 065
     Dates: start: 202101
  12. VITAMIN E [Concomitant]
     Active Substance: .ALPHA.-TOCOPHEROL
     Indication: PRODUCT USED FOR UNKNOWN INDICATION
     Dosage: UNK, QD, ONCE A DAY, SINCE 10 YEARS
     Route: 065

REACTIONS (9)
  - Asthma [Unknown]
  - Device defective [Unknown]
  - Dyspnoea [Not Recovered/Not Resolved]
  - Circumstance or information capable of leading to device use error [Unknown]
  - Product communication issue [Unknown]
  - Drug delivery system issue [Unknown]
  - Wrong technique in device usage process [Unknown]
  - Product quality issue [Unknown]
  - Device malfunction [Unknown]

NARRATIVE: CASE EVENT DATE: 202102
